FAERS Safety Report 9604181 (Version 1)
Quarter: 2013Q4

REPORT INFORMATION
  Report Type: Spontaneous
  Country: US (occurrence: US)
  Receive Date: 20131008
  Receipt Date: 20131008
  Transmission Date: 20140711
  Serious: Yes (Hospitalization)
  Sender: FDA-Public Use
  Company Number: US-SANOFI-AVENTIS-2013SA089752

PATIENT
  Sex: Male

DRUGS (10)
  1. LANTUS [Suspect]
     Dosage: DOSE:20 UNIT(S)
     Route: 051
  2. KLONOPIN [Concomitant]
     Route: 065
  3. KLONOPIN [Concomitant]
     Route: 065
  4. KEPPRA [Concomitant]
     Route: 065
  5. KEPPRA [Concomitant]
     Route: 065
  6. VIMPAT [Concomitant]
     Route: 065
  7. VIMPAT [Concomitant]
     Route: 065
  8. TRILEPTAL [Concomitant]
     Route: 065
  9. TRILEPTAL [Concomitant]
     Route: 065
  10. HUMALOG [Concomitant]

REACTIONS (1)
  - Convulsion [Unknown]
